FAERS Safety Report 4719011-1 (Version None)
Quarter: 2005Q3

REPORT INFORMATION
  Report Type: 
  Country: None (occurrence: None)
  Receive Date: 20050719
  Receipt Date: 20050707
  Transmission Date: 20060218
  Serious: Yes (Life-Threatening, Hospitalization, Other)
  Sender: FDA-Public Use
  Company Number: 2004094627

PATIENT
  Age: 56 Year
  Sex: Male
  Weight: 78 kg

DRUGS (10)
  1. VIAGRA [Suspect]
     Indication: ERECTILE DYSFUNCTION
     Dosage: 1 IN 1 D, ORAL
     Route: 048
     Dates: start: 19980101, end: 20040101
  2. AMLODIPINE [Concomitant]
     Indication: HYPERTENSION
     Dosage: 1 IN1 D, ORAL
     Route: 048
     Dates: end: 20041022
  3. ISOSORBIDE DINITRATE [Suspect]
     Indication: ACUTE MYOCARDIAL INFARCTION
     Dosage: INTRAVENOUS
     Route: 042
     Dates: start: 20041023
  4. ANTI-DIABETCS       (ANTI-DIABETICS) [Concomitant]
  5. PERSANTIN [Concomitant]
  6. LIPITOR [Concomitant]
  7. EUGLUCON          (GLIBECLAMIDE) [Concomitant]
  8. DIGOXIN [Concomitant]
  9. BAYASPRIN          (ACETYLSALICYLIC ACID) [Concomitant]
  10. BASEN            (VOGLIBOSE) [Concomitant]

REACTIONS (20)
  - ACUTE MYOCARDIAL INFARCTION [None]
  - ALANINE AMINOTRANSFERASE INCREASED [None]
  - ALCOHOL USE [None]
  - ASPARTATE AMINOTRANSFERASE INCREASED [None]
  - CARDIOGENIC SHOCK [None]
  - CORONARY ARTERY DISEASE [None]
  - CORONARY ARTERY OCCLUSION [None]
  - CORONARY ARTERY STENOSIS [None]
  - GLYCOSYLATED HAEMOGLOBIN INCREASED [None]
  - HEART RATE DECREASED [None]
  - HEART RATE IRREGULAR [None]
  - HYPERTENSION [None]
  - HYPOTENSION [None]
  - MYOCARDIAL ISCHAEMIA [None]
  - SELF-MEDICATION [None]
  - SHOCK [None]
  - TORSADE DE POINTES [None]
  - VENTRICULAR FIBRILLATION [None]
  - VENTRICULAR TACHYCARDIA [None]
  - WHITE BLOOD CELL COUNT INCREASED [None]
